FAERS Safety Report 7465155-3 (Version None)
Quarter: 2011Q2

REPORT INFORMATION
  Report Type: 
  Country: None (occurrence: None)
  Receive Date: 20110505
  Receipt Date: 20110505
  Transmission Date: 20111010
  Serious: Yes (Other)
  Sender: FDA-Public Use
  Company Number: None

PATIENT
  Age: 45 Year
  Sex: Female
  Weight: 78.9259 kg

DRUGS (1)
  1. METHADONE HCL [Suspect]
     Indication: PAIN MANAGEMENT
     Dosage: UNDER 30 MGS. DAILY ORAL
     Route: 048
     Dates: start: 20100801, end: 20110201

REACTIONS (3)
  - MALAISE [None]
  - PRODUCT MEASURED POTENCY ISSUE [None]
  - DRUG WITHDRAWAL SYNDROME [None]
